FAERS Safety Report 9885784 (Version 5)
Quarter: 2014Q4

REPORT INFORMATION
  Report Type: Report from Study
  Country: GB (occurrence: GB)
  Receive Date: 20140210
  Receipt Date: 20141117
  Transmission Date: 20150529
  Serious: Yes (Hospitalization, Other)
  Sender: FDA-Public Use
  Company Number: GB-BRISTOL-MYERS SQUIBB COMPANY-20132148

PATIENT
  Age: 69 Year
  Sex: Female

DRUGS (1)
  1. ORENCIA [Suspect]
     Active Substance: ABATACEPT
     Indication: RHEUMATOID ARTHRITIS
     Dosage: INTERRUPTED FOR 4 WEEKS, PRE-FILLED PEN
     Route: 058

REACTIONS (4)
  - Tooth impacted [Unknown]
  - Tooth abscess [Unknown]
  - Nasopharyngitis [Unknown]
  - Arthropathy [Unknown]
